FAERS Safety Report 19051741 (Version 1)
Quarter: 2021Q1

REPORT INFORMATION
  Report Type: Spontaneous
  Country: FR (occurrence: FR)
  Receive Date: 20210324
  Receipt Date: 20210324
  Transmission Date: 20210420
  Serious: Yes (Other)
  Sender: FDA-Public Use
  Company Number: FR-FRESENIUS KABI-FK202102654

PATIENT
  Age: 70 Year
  Sex: Male

DRUGS (5)
  1. AMOXICILLIN/CLAVULANIC ACID [Concomitant]
     Active Substance: AMOXICILLIN\CLAVULANIC ACID
     Indication: ANTIBIOTIC THERAPY
     Dosage: UNK
  2. OFLOXACIN. [Concomitant]
     Active Substance: OFLOXACIN
     Indication: ANTIBIOTIC THERAPY
     Dosage: UNK
  3. PIPERACILLIN SODIUM/TAZOBACTAM SODIUM [Concomitant]
     Active Substance: PIPERACILLIN SODIUM\TAZOBACTAM SODIUM
     Indication: ANTIBIOTIC THERAPY
     Dosage: UNK
  4. LINEZOLID (MANUFACTURER UNKNOWN) [Suspect]
     Active Substance: LINEZOLID
     Indication: OSTEITIS
     Dosage: UNK
     Route: 065
  5. EMTRICITABINE/TENOFOVIR ALAFENAMIDE/RILPIVIRINE [Concomitant]
     Indication: HIV INFECTION
     Dosage: UNK

REACTIONS (1)
  - Sideroblastic anaemia [Recovered/Resolved]
